FAERS Safety Report 18960135 (Version 4)
Quarter: 2021Q2

REPORT INFORMATION
  Report Type: Spontaneous
  Country: FR (occurrence: FR)
  Receive Date: 20210302
  Receipt Date: 20210607
  Transmission Date: 20210717
  Serious: Yes (Hospitalization, Congenital Anomaly, Other)
  Sender: FDA-Public Use
  Company Number: NVSC2021FR042674

PATIENT
  Sex: Male
  Weight: 3.76 kg

DRUGS (3)
  1. GILENYA [Suspect]
     Active Substance: FINGOLIMOD HYDROCHLORIDE
     Indication: FOETAL EXPOSURE DURING PREGNANCY
     Dosage: MATERNAL DOSE: 1 DF, QD
     Route: 064
  2. LANTUS [Concomitant]
     Active Substance: INSULIN GLARGINE
     Indication: FOETAL EXPOSURE DURING PREGNANCY
     Dosage: MATERNAL DOSE: UNKNOWN
     Route: 064
  3. INSULINE [Concomitant]
     Active Substance: INSULIN NOS
     Indication: FOETAL EXPOSURE DURING PREGNANCY
     Dosage: MATERNAL DOSE: UNKNOWN
     Route: 064

REACTIONS (4)
  - Foetal cardiac disorder [Unknown]
  - Jaundice neonatal [Unknown]
  - Foetal macrosomia [Unknown]
  - Foetal exposure during pregnancy [Unknown]
